FAERS Safety Report 15493775 (Version 1)
Quarter: 2018Q4

REPORT INFORMATION
  Report Type: Spontaneous
  Country: US (occurrence: US)
  Receive Date: 20181012
  Receipt Date: 20181012
  Transmission Date: 20190205
  Serious: No
  Sender: FDA-Public Use
  Company Number: US-SUNOVION-2018SUN003816

PATIENT
  Age: 25 Year
  Sex: Female
  Weight: 81.63 kg

DRUGS (2)
  1. LATUDA [Suspect]
     Active Substance: LURASIDONE HYDROCHLORIDE
     Indication: ANXIETY
     Dosage: 80 MG, UNK
     Route: 048
     Dates: start: 201809, end: 201809
  2. LATUDA [Suspect]
     Active Substance: LURASIDONE HYDROCHLORIDE
     Indication: DEPRESSION
     Dosage: 60 MG, UNK
     Route: 048

REACTIONS (1)
  - Restlessness [Not Recovered/Not Resolved]

NARRATIVE: CASE EVENT DATE: 201809
